FAERS Safety Report 10420161 (Version 1)
Quarter: 2014Q3

REPORT INFORMATION
  Report Type: Spontaneous
  Country: US (occurrence: None)
  Receive Date: 20140701
  Receipt Date: 20140701
  Transmission Date: 20150326
  Serious: No
  Sender: FDA-Public Use
  Company Number: 1000067586

PATIENT
  Age: 59 Year
  Sex: Female

DRUGS (6)
  1. LINZESS [Suspect]
     Active Substance: LINACLOTIDE
     Indication: CONSTIPATION
     Dosage: 290 MCG (290 MCG, 1 IN 1 D), ORAL
     Route: 048
     Dates: start: 20140515
  2. SYNTHROID (LEVOTHYROXINE SODUM) (LEVOTHYROXINE SODIUM) [Concomitant]
  3. SEROQUEL (QUETIAPINE FUMARATE) (QUETIAPINE FUMARATE) [Concomitant]
  4. PROZAC (FLUOXETINE HYDROCHLORIDE) (FLUOXETINE) [Concomitant]
  5. CRESTOR (ROSUVASTATIN CALCIUM) (ROSUVASTATIN CALCIUM) [Concomitant]
  6. SUBUTEX (BUPRENORPHINE HYDROCHLORIDE) (BUPRENORPHINE HYDROCHLORIDE) [Concomitant]

REACTIONS (1)
  - Drug ineffective [None]

NARRATIVE: CASE EVENT DATE: 20140515
